FAERS Safety Report 7583431-0 (Version None)
Quarter: 2011Q2

REPORT INFORMATION
  Report Type: 
  Country: None (occurrence: None)
  Receive Date: 20110630
  Receipt Date: 20110621
  Transmission Date: 20111010
  Serious: Yes (Death, Hospitalization)
  Sender: FDA-Public Use
  Company Number: JP-ASTRAZENECA-2011SE38468

PATIENT
  Age: 83 Year
  Sex: Male
  Weight: 56 kg

DRUGS (14)
  1. ZOLPIDEM [Suspect]
     Route: 048
     Dates: end: 20101203
  2. CANDESARTAN CILEXETIL [Suspect]
     Indication: HYPERTENSION
     Route: 048
     Dates: end: 20101203
  3. ASPIRIN [Concomitant]
     Route: 048
  4. ACTOS [Suspect]
     Indication: TYPE 2 DIABETES MELLITUS
     Route: 048
     Dates: start: 20100109, end: 20101110
  5. NOVORAPID [Suspect]
     Dosage: TWO TIMES A DAY
     Route: 058
     Dates: end: 20101204
  6. LASIX [Concomitant]
     Indication: HYPERTENSION
     Route: 048
     Dates: end: 20101203
  7. HARNAL D [Concomitant]
     Route: 048
  8. CALBLOCK [Suspect]
     Indication: HYPERTENSION
     Route: 048
     Dates: end: 20101203
  9. SELTOUCH [Concomitant]
     Route: 062
  10. WYTENS [Suspect]
     Indication: HYPERTENSION
     Route: 048
     Dates: end: 20100909
  11. NOVORAPID [Suspect]
     Indication: TYPE 2 DIABETES MELLITUS
     Route: 058
     Dates: end: 20101116
  12. PURSENNID [Concomitant]
     Indication: CONSTIPATION
     Route: 048
  13. LIPITOR [Suspect]
     Indication: DYSLIPIDAEMIA
     Route: 048
     Dates: end: 20101202
  14. LANSOPRAZOLE [Concomitant]
     Indication: GASTRITIS PROPHYLAXIS
     Route: 048
     Dates: end: 20101204

REACTIONS (2)
  - URINARY TRACT INFECTION [None]
  - RECTAL CANCER [None]
